FAERS Safety Report 14566089 (Version 1)
Quarter: 2018Q1

REPORT INFORMATION
  Report Type: Spontaneous
  Country: US (occurrence: US)
  Receive Date: 20180222
  Receipt Date: 20180222
  Transmission Date: 20180509
  Serious: No
  Sender: FDA-Public Use
  Company Number: None

PATIENT
  Age: 17 Year
  Sex: Female

DRUGS (13)
  1. PROPRANOLOL [Concomitant]
     Active Substance: PROPRANOLOL HYDROCHLORIDE
  2. FERROUS SULFATE. [Concomitant]
     Active Substance: FERROUS SULFATE
  3. MVI [Concomitant]
     Active Substance: VITAMINS
  4. CYPROHEPTADINE. [Concomitant]
     Active Substance: CYPROHEPTADINE
  5. SUMATRIPTAN. [Concomitant]
     Active Substance: SUMATRIPTAN
  6. REXULTI [Concomitant]
     Active Substance: BREXPIPRAZOLE
  7. DULOXETINE. [Suspect]
     Active Substance: DULOXETINE
     Indication: GENERALISED ANXIETY DISORDER
     Route: 048
     Dates: start: 20171120
  8. DIAZEPAM. [Concomitant]
     Active Substance: DIAZEPAM
  9. DULOXETINE. [Suspect]
     Active Substance: DULOXETINE
     Indication: MAJOR DEPRESSION
     Route: 048
     Dates: start: 20171120
  10. CLONIDINE. [Concomitant]
     Active Substance: CLONIDINE
  11. L-METHYLFOLATE [Concomitant]
     Active Substance: LEVOMEFOLIC ACID
  12. VITAMIN D [Concomitant]
     Active Substance: CHOLECALCIFEROL
  13. BACLOFEN. [Concomitant]
     Active Substance: BACLOFEN

REACTIONS (2)
  - Sleep terror [None]
  - Nightmare [None]

NARRATIVE: CASE EVENT DATE: 20171120
